FAERS Safety Report 21906186 (Version 1)
Quarter: 2023Q1

REPORT INFORMATION
  Report Type: Report from Study
  Country: BR (occurrence: BR)
  Receive Date: 20230124
  Receipt Date: 20230124
  Transmission Date: 20230418
  Serious: Yes (Hospitalization, Other)
  Sender: FDA-Public Use
  Company Number: BR-CELLTRION INC.-2023BR001582

PATIENT

DRUGS (3)
  1. INFLIXIMAB [Suspect]
     Active Substance: INFLIXIMAB
     Indication: Crohn^s disease
     Dosage: 3 AMPOULES-100MG-EVERY 2 MONTHS
     Route: 042
     Dates: start: 20221024
  2. INFLIXIMAB [Suspect]
     Active Substance: INFLIXIMAB
     Indication: Crohn^s disease
     Dosage: UNK
     Dates: start: 202206
  3. AZATHIOPRINE [Suspect]
     Active Substance: AZATHIOPRINE
     Indication: Crohn^s disease
     Dosage: 1 PILL PER DAY
     Route: 048
     Dates: start: 202206

REACTIONS (6)
  - Crohn^s disease [Unknown]
  - Intestinal obstruction [Recovered/Resolved]
  - Tooth fracture [Recovered/Resolved]
  - Pain [Unknown]
  - Pulpitis dental [Unknown]
  - Intentional dose omission [Unknown]
